FAERS Safety Report 10249548 (Version 1)
Quarter: 2014Q2

REPORT INFORMATION
  Report Type: Spontaneous
  Country: US (occurrence: US)
  Receive Date: 20140620
  Receipt Date: 20140620
  Transmission Date: 20141212
  Serious: No
  Sender: FDA-Public Use
  Company Number: US-PFIZER INC-2014169994

PATIENT
  Age: 57 Year
  Sex: Female
  Weight: 65.76 kg

DRUGS (7)
  1. CHANTIX [Suspect]
     Indication: SMOKING CESSATION THERAPY
     Dosage: UNK
  2. CHANTIX [Suspect]
     Dosage: UNK (RESTARTED)
  3. WELLBUTRIN [Concomitant]
     Indication: DEPRESSION
     Dosage: UNK
  4. FOSAMAX [Concomitant]
     Indication: OSTEOPOROSIS
     Dosage: UNK
  5. PREMARIN [Concomitant]
     Dosage: UNK
  6. LORATADINE [Concomitant]
     Dosage: UNK, DAILY
  7. HYDROXYZINE HYDROCHLORIDE [Concomitant]
     Dosage: UNK

REACTIONS (1)
  - Drug ineffective [Unknown]
